FAERS Safety Report 24680128 (Version 1)
Quarter: 2024Q4

REPORT INFORMATION
  Report Type: Spontaneous
  Country: US (occurrence: US)
  Receive Date: 20241129
  Receipt Date: 20241129
  Transmission Date: 20250114
  Serious: Yes (Other)
  Sender: BRACCO
  Company Number: US-BRACCO-2023US06305

PATIENT
  Age: 60 Year
  Sex: Male

DRUGS (6)
  1. LUMASON [Suspect]
     Active Substance: SULFUR HEXAFLUORIDE
     Indication: Echocardiogram
     Dosage: UNK
     Dates: start: 20231122, end: 20231122
  2. LUMASON [Suspect]
     Active Substance: SULFUR HEXAFLUORIDE
     Indication: Echocardiogram
     Dosage: UNK
     Dates: start: 20231122, end: 20231122
  3. LUMASON [Suspect]
     Active Substance: SULFUR HEXAFLUORIDE
     Indication: Echocardiogram
     Dosage: UNK
     Dates: start: 20231122, end: 20231122
  4. LUMASON [Suspect]
     Active Substance: SULFUR HEXAFLUORIDE
     Dosage: UNK, SINGLE
  5. LUMASON [Suspect]
     Active Substance: SULFUR HEXAFLUORIDE
     Dosage: UNK, SINGLE
  6. LUMASON [Suspect]
     Active Substance: SULFUR HEXAFLUORIDE
     Dosage: UNK, SINGLE

REACTIONS (7)
  - Loss of consciousness [Recovered/Resolved]
  - Seizure [Recovered/Resolved]
  - Hypotension [Recovered/Resolved]
  - Flushing [Unknown]
  - Pallor [Unknown]
  - Hyperhidrosis [Unknown]
  - Nausea [Unknown]

NARRATIVE: CASE EVENT DATE: 20231122
